FAERS Safety Report 6022152-2 (Version None)
Quarter: 2008Q4

REPORT INFORMATION
  Report Type: 
  Country: None (occurrence: None)
  Receive Date: 20081229
  Receipt Date: 20081218
  Transmission Date: 20090506
  Serious: Yes (Other)
  Sender: FDA-Public Use
  Company Number: FR-B.I. PHARMACEUTICALS,INC./RIDGEFIELD-2008-FF-00920FF

PATIENT
  Age: 35 Year
  Sex: Female

DRUGS (1)
  1. JOSIR [Suspect]
     Indication: POLLAKIURIA
     Dosage: .4MG
     Route: 048

REACTIONS (3)
  - ABORTION SPONTANEOUS [None]
  - GENITAL HAEMORRHAGE [None]
  - MULTIPLE PREGNANCY [None]
